FAERS Safety Report 14382397 (Version 1)
Quarter: 2018Q1

REPORT INFORMATION
  Report Type: Report from Study
  Country: US (occurrence: BR)
  Receive Date: 20180112
  Receipt Date: 20180112
  Transmission Date: 20180509
  Serious: Yes (Other)
  Sender: FDA-Public Use
  Company Number: US-SUNOVION-2018SUN000025

PATIENT
  Sex: Male
  Weight: 70 kg

DRUGS (2)
  1. AEROLIN [Concomitant]
     Active Substance: ALBUTEROL
  2. INDACATEROL AND GLYCOPYRROLATE [Suspect]
     Active Substance: GLYCOPYRROLATE\INDACATEROL MALEATE
     Indication: EMPHYSEMA
     Dosage: 1 DF (110/50 UG), QD
     Route: 055

REACTIONS (2)
  - Cough [Unknown]
  - Lung disorder [Unknown]
